FAERS Safety Report 9038464 (Version 3)
Quarter: 2013Q2

REPORT INFORMATION
  Report Type: Spontaneous
  Country: JP (occurrence: JP)
  Receive Date: 20130129
  Receipt Date: 20130520
  Transmission Date: 20140414
  Serious: Yes (Life-Threatening, Other)
  Sender: FDA-Public Use
  Company Number: JP-EISAI INC-E2020-11903-SPO-JP

PATIENT
  Age: 87 Year
  Sex: Male

DRUGS (12)
  1. ARICEPT [Suspect]
     Indication: DEMENTIA ALZHEIMER^S TYPE
     Route: 048
     Dates: end: 20130123
  2. HALFDIGOXIN [Suspect]
     Indication: PRODUCT USED FOR UNKNOWN INDICATION
     Dosage: 0.125 MG DAILY
     Route: 048
  3. WARFARIN [Concomitant]
     Indication: ATRIAL FIBRILLATION
     Dosage: 2 MG
     Route: 048
  4. LUPRAC [Concomitant]
     Dosage: 4 MG DAILY
     Route: 048
  5. ALDACTONE A [Concomitant]
     Dosage: 25 MG DAILY
     Route: 048
  6. RENIVACE [Concomitant]
     Dosage: 2.5 MG DAILY
     Route: 048
  7. GASTER [Concomitant]
     Dosage: 20 MG DAILY
     Route: 048
  8. PURSENNID [Concomitant]
     Dosage: 24 MG DAILY
     Route: 048
  9. MIYA BM [Concomitant]
     Dosage: 3 G DAILY
     Route: 048
  10. MYSLEE [Concomitant]
     Dosage: 10 MG DAILY
     Route: 048
  11. PINATOS [Concomitant]
     Dosage: 10 MG DALY
     Route: 048
  12. KETAS [Concomitant]
     Dosage: 10 MG DAILY
     Route: 048

REACTIONS (3)
  - Miosis [Recovered/Resolved]
  - Dyskinesia [Recovered/Resolved]
  - Bradycardia [Recovered/Resolved]
